FAERS Safety Report 23908304 (Version 1)
Quarter: 2024Q2

REPORT INFORMATION
  Report Type: Spontaneous
  Country: US (occurrence: US)
  Receive Date: 20240528
  Receipt Date: 20240528
  Transmission Date: 20240716
  Serious: No
  Sender: FDA-Public Use
  Company Number: US-AMNEAL PHARMACEUTICALS-2023-AMRX-03679

PATIENT
  Sex: Female

DRUGS (1)
  1. PROPRANOLOL HYDROCHLORIDE [Suspect]
     Active Substance: PROPRANOLOL HYDROCHLORIDE
     Indication: Atrial fibrillation
     Dosage: 10 MG PROPRANOLOL IN THE MORNING AND 20 MG PROPRANOLOL IN THE EVENING
     Route: 065

REACTIONS (10)
  - Cough [Unknown]
  - Throat irritation [Unknown]
  - Feeling hot [Unknown]
  - Erythema [Recovered/Resolved]
  - Arthralgia [Unknown]
  - Dysphonia [Unknown]
  - Lymphadenopathy [Unknown]
  - Influenza like illness [Unknown]
  - Headache [Unknown]
  - Fatigue [Unknown]

NARRATIVE: CASE EVENT DATE: 20231011
